FAERS Safety Report 6419725-1 (Version None)
Quarter: 2009Q4

REPORT INFORMATION
  Report Type: 
  Country: None (occurrence: None)
  Receive Date: 20091029
  Receipt Date: 20091020
  Transmission Date: 20100525
  Serious: Yes (Life-Threatening, Hospitalization)
  Sender: FDA-Public Use
  Company Number: DE-AVENTIS-200912417DE

PATIENT
  Age: 49 Year
  Sex: Female
  Weight: 65 kg

DRUGS (5)
  1. LANTUS [Suspect]
     Indication: SUICIDE ATTEMPT
     Route: 058
     Dates: start: 20090925, end: 20090925
  2. PROTAPHAN                          /01322201/ [Suspect]
     Indication: SUICIDE ATTEMPT
     Route: 058
     Dates: start: 20090925, end: 20090925
  3. NOVORAPID [Suspect]
     Indication: SUICIDE ATTEMPT
     Route: 058
     Dates: start: 20090925, end: 20090925
  4. CITALOPRAM [Concomitant]
     Indication: DEPRESSION
     Route: 048
     Dates: start: 20090401
  5. OPIPRAMOL [Concomitant]
     Indication: DEPRESSION
     Route: 048
     Dates: start: 20090601

REACTIONS (4)
  - COLD SWEAT [None]
  - HYPOGLYCAEMIA [None]
  - INTENTIONAL OVERDOSE [None]
  - SUICIDE ATTEMPT [None]
